FAERS Safety Report 6847242-3 (Version None)
Quarter: 2010Q2

REPORT INFORMATION
  Report Type: 
  Country: None (occurrence: None)
  Receive Date: 20100629
  Receipt Date: 20100503
  Transmission Date: 20101027
  Serious: No
  Sender: FDA-Public Use
  Company Number: US-WYE-H15074610

PATIENT
  Age: 76 Year
  Sex: Female
  Weight: 77.18 kg

DRUGS (6)
  1. PRISTIQ [Suspect]
     Indication: DEPRESSION
     Dosage: 50 MG 1X PER 1 DAY, ORAL : 100 MG 1X PER 1 DAY, ORAL
     Route: 048
     Dates: start: 20090101, end: 20100428
  2. PRISTIQ [Suspect]
     Indication: DEPRESSION
     Dosage: 50 MG 1X PER 1 DAY, ORAL : 100 MG 1X PER 1 DAY, ORAL
     Route: 048
     Dates: start: 20100429
  3. CRESTOR [Concomitant]
  4. METOPROLOL SUCCINATE [Concomitant]
  5. IMIPRAMINE [Concomitant]
  6. TRAZODONE HCL [Concomitant]

REACTIONS (2)
  - DRUG INEFFECTIVE [None]
  - MEDICATION RESIDUE [None]
